FAERS Safety Report 7491845-2 (Version None)
Quarter: 2011Q2

REPORT INFORMATION
  Report Type: 
  Country: None (occurrence: None)
  Receive Date: 20110518
  Receipt Date: 20110518
  Transmission Date: 20111010
  Serious: Yes (Other)
  Sender: FDA-Public Use
  Company Number: None

PATIENT
  Age: 64 Year
  Sex: Male
  Weight: 77.3 kg

DRUGS (1)
  1. HEPARIN [Suspect]
     Indication: HEPARIN-INDUCED THROMBOCYTOPENIA
     Dosage: 5000 UNITS TID SQ
     Route: 058
     Dates: start: 20110503, end: 20110507

REACTIONS (1)
  - HEPARIN-INDUCED THROMBOCYTOPENIA [None]
